FAERS Safety Report 19995241 (Version 1)
Quarter: 2021Q4

REPORT INFORMATION
  Report Type: Spontaneous
  Country: US (occurrence: US)
  Receive Date: 20211026
  Receipt Date: 20211026
  Transmission Date: 20220303
  Serious: Yes (unspecified)
  Sender: FDA-Public Use
  Company Number: None

PATIENT
  Age: 45 Year

DRUGS (1)
  1. BAMLANIVIMAB\ETESEVIMAB [Suspect]
     Active Substance: BAMLANIVIMAB\ETESEVIMAB
     Indication: COVID-19
     Dosage: ?          OTHER FREQUENCY:ONCE;????OTHER FREQUENCY : AC
     Route: 042
     Dates: start: 20211022, end: 20211022

REACTIONS (7)
  - Chest pain [None]
  - Hyperhidrosis [None]
  - Abdominal pain upper [None]
  - Blood pressure increased [None]
  - Heart rate increased [None]
  - Infusion related reaction [None]
  - Flushing [None]

NARRATIVE: CASE EVENT DATE: 20211022
